FAERS Safety Report 7035328-2 (Version None)
Quarter: 2010Q4

REPORT INFORMATION
  Report Type: 
  Country: None (occurrence: None)
  Receive Date: 20101008
  Receipt Date: 20100929
  Transmission Date: 20110411
  Serious: Yes (Hospitalization)
  Sender: FDA-Public Use
  Company Number: B0678270A

PATIENT
  Age: 51 Year
  Sex: Male

DRUGS (7)
  1. ZINACEF [Suspect]
     Indication: PRODUCT USED FOR UNKNOWN INDICATION
     Dosage: 1.5G VARIABLE DOSE
     Route: 040
     Dates: start: 20090501, end: 20090503
  2. ELTROXIN [Concomitant]
     Indication: HYPOTHYROIDISM
     Route: 048
  3. IBRUPROFEN [Concomitant]
     Route: 048
  4. ACETAMINOPHEN [Concomitant]
     Route: 048
  5. NOVALGIN [Concomitant]
     Route: 048
  6. NEXIUM [Concomitant]
     Route: 048
  7. FOLVITE [Concomitant]
     Route: 048

REACTIONS (10)
  - ABDOMINAL PAIN LOWER [None]
  - AUTOIMMUNE HEPATITIS [None]
  - BLOOD BILIRUBIN INCREASED [None]
  - CHOLESTASIS [None]
  - FATIGUE [None]
  - HEPATIC NECROSIS [None]
  - LIVER FUNCTION TEST ABNORMAL [None]
  - LIVER INJURY [None]
  - NAUSEA [None]
  - PAIN IN EXTREMITY [None]
